FAERS Safety Report 6065116-5 (Version None)
Quarter: 2009Q1

REPORT INFORMATION
  Report Type: 
  Country: None (occurrence: None)
  Receive Date: 20090204
  Receipt Date: 20090126
  Transmission Date: 20090719
  Serious: Yes (Other)
  Sender: FDA-Public Use
  Company Number: US-ELI_LILLY_AND_COMPANY-US200812005963

PATIENT
  Sex: Female

DRUGS (2)
  1. HUMALOG [Suspect]
  2. RESTASIS [Concomitant]
     Dosage: UNK, 2/D
     Dates: start: 20080624

REACTIONS (6)
  - ARTERIAL OCCLUSIVE DISEASE [None]
  - HYPOACUSIS [None]
  - KERATOCONJUNCTIVITIS SICCA [None]
  - NEUROPATHY PERIPHERAL [None]
  - SPINAL COLUMN STENOSIS [None]
  - VISUAL ACUITY REDUCED [None]
